FAERS Safety Report 19235218 (Version 6)
Quarter: 2024Q1

REPORT INFORMATION
  Report Type: Spontaneous
  Country: PK (occurrence: PK)
  Receive Date: 20210509
  Receipt Date: 20240311
  Transmission Date: 20240410
  Serious: Yes (Other)
  Sender: FDA-Public Use
  Company Number: PK-PFIZER INC-2021495464

PATIENT
  Age: 30 Year
  Sex: Female
  Weight: 61 kg

DRUGS (16)
  1. ENBREL [Suspect]
     Active Substance: ETANERCEPT
     Indication: Rheumatoid arthritis
     Dosage: 50 MILLIGRAM, QWK
     Route: 058
     Dates: start: 202012, end: 202108
  2. ENBREL [Suspect]
     Active Substance: ETANERCEPT
     Dosage: 50 MILLIGRAM, QWK
     Route: 058
     Dates: start: 202308
  3. HYDROXYCHLOROQUINE SULFATE [Concomitant]
     Active Substance: HYDROXYCHLOROQUINE SULFATE
     Indication: Product used for unknown indication
     Dosage: 200 MG, DAILY(1 TABLET IN EVENING )
  4. PRED [PREDNISONE] [Concomitant]
     Indication: Product used for unknown indication
     Dosage: 5 MILLIGRAM, QD
     Route: 065
  5. SULFASALAZINE [Concomitant]
     Active Substance: SULFASALAZINE
     Indication: Product used for unknown indication
     Dosage: 2 GRAM, QD
     Route: 065
  6. LEFLUNOMIDE [Concomitant]
     Active Substance: LEFLUNOMIDE
     Indication: Product used for unknown indication
     Dosage: 10 MILLIGRAM, QD
  7. LEFLUNOMIDE [Concomitant]
     Active Substance: LEFLUNOMIDE
     Dosage: 20 MG, 1X/DAY(1 + 0 + 0 + 0 . TAKE 1 TABLET IN MORNING )
     Route: 065
  8. CELBEXX [Concomitant]
     Indication: Product used for unknown indication
     Dosage: 0+0+0+1 AFTER MEAL 1 TAB AT NIGHT AFTER MEAL FOR 2 WEEKS
  9. CELBEXX [Concomitant]
     Dosage: 0+0+0+1 AFTER MEAL 1 TAB AT NIGHT AFTER MEAL FOR 2 WEEKS
     Route: 065
  10. FOLIC ACID [Concomitant]
     Active Substance: FOLIC ACID
     Indication: Product used for unknown indication
     Dosage: 1 X TABLETS, ONCE A DAY, OFF ON SAT , SUN
  11. ESSO [Concomitant]
     Indication: Product used for unknown indication
     Dosage: 1 + 0 + 1 + 0 . BEFORE MEAL: 1+1 IN MORNING AND EVENING
  12. ESSO [Concomitant]
     Dosage: 20 MG(1 + 0 + 1 + 0 .1+1 IN MORNING AND EVENING BEFORE MEAL )
     Route: 065
  13. OXYCLOR [Concomitant]
     Indication: Product used for unknown indication
     Dosage: 0 + 0 + 1 + 0: TAKE 1 TABLET IN EVENING
     Route: 065
  14. OXYCLOR [Concomitant]
     Dosage: 0 + 0 + 1 + 0: TAKE 1 TABLET IN EVENING
     Route: 065
  15. PLAQUIN H [Concomitant]
     Indication: Product used for unknown indication
     Dosage: 0 + 0 + 1 + 0: TAKE 1 TABLET IN EVENING
  16. PLAQUIN H [Concomitant]
     Dosage: 0 + 0 + 1 + 0: TAKE 1 TABLET IN EVENING
     Route: 065

REACTIONS (10)
  - Haematochezia [Unknown]
  - Condition aggravated [Unknown]
  - Red blood cell sedimentation rate increased [Unknown]
  - Arthralgia [Unknown]
  - Headache [Unknown]
  - Infection [Unknown]
  - Pruritus [Unknown]
  - Acarodermatitis [Unknown]
  - Joint swelling [Unknown]
  - Musculoskeletal stiffness [Unknown]

NARRATIVE: CASE EVENT DATE: 20220101
